FAERS Safety Report 21165708 (Version 1)
Quarter: 2022Q3

REPORT INFORMATION
  Report Type: Spontaneous
  Country: SK (occurrence: SK)
  Receive Date: 20220803
  Receipt Date: 20220803
  Transmission Date: 20221027
  Serious: Yes (Hospitalization, Other)
  Sender: FDA-Public Use
  Company Number: None

PATIENT
  Age: 74 Year
  Sex: Male
  Weight: 100 kg

DRUGS (21)
  1. VANCOMYCIN HYDROCHLORIDE [Suspect]
     Active Substance: VANCOMYCIN HYDROCHLORIDE
     Indication: Staphylococcal infection
     Dosage: 1 G, Q12H (DOSAGE FORM: PLV IFO)
     Route: 065
     Dates: start: 20220602, end: 20220628
  2. VANCOMYCIN HYDROCHLORIDE [Suspect]
     Active Substance: VANCOMYCIN HYDROCHLORIDE
     Indication: Postoperative wound infection
  3. SORBIFER [Concomitant]
     Indication: Blood disorder
     Dosage: 1 DOSAGE FORM, BID (1 - 0 - 1)
     Route: 065
  4. FUROSEMID SLOVAKOFARMA [Concomitant]
     Indication: Cardiac failure chronic
     Dosage: 125 MG (250MG: 1/2 - 0 - 0 )
     Route: 065
  5. CEFTAZIDIM KABI [Concomitant]
     Indication: Pneumonia pseudomonal
     Dosage: 2 G, Q12H (DOSAGE FORM: PLV IJF)
     Route: 065
     Dates: start: 20220613, end: 20220627
  6. CEFTAZIDIM KABI [Concomitant]
     Indication: Postoperative wound infection
  7. PERINDOPRIL [Concomitant]
     Active Substance: PERINDOPRIL
     Indication: Cardiac failure chronic
     Dosage: 4 MG, QD (1 - 0 - 0)
     Route: 065
  8. PERINDOPRIL [Concomitant]
     Active Substance: PERINDOPRIL
     Indication: Hypertension
  9. FOLIC ACID [Concomitant]
     Active Substance: FOLIC ACID
     Indication: Blood disorder
     Dosage: 10 MG, QD (1 - 0 - 0) (DOSAGE FORM: TBL OBD)
     Route: 065
  10. PANTOPRAZOLE SODIUM [Concomitant]
     Active Substance: PANTOPRAZOLE SODIUM
     Indication: Stress ulcer
     Dosage: 40 MG, QD (1 - 0 - 0), (DOSAGE FORM: TBL ENT)
     Route: 065
  11. PANTOPRAZOLE SODIUM [Concomitant]
     Active Substance: PANTOPRAZOLE SODIUM
     Indication: Gastrooesophageal reflux disease
  12. NITRENDIPINE [Concomitant]
     Active Substance: NITRENDIPINE
     Indication: Hypertension
     Dosage: 20 MG, QD (0 - 0 - 1)
     Route: 065
  13. TOUJEO [Concomitant]
     Active Substance: INSULIN GLARGINE
     Indication: Type 2 diabetes mellitus
     Dosage: 34 IU, AT 9 PM
     Route: 065
  14. ACETAMINOPHEN\TRAMADOL HYDROCHLORIDE [Concomitant]
     Active Substance: ACETAMINOPHEN\TRAMADOL HYDROCHLORIDE
     Indication: Pain
     Dosage: 1 DOSAGE FORM, BID (1 - 0 - 1)
     Route: 065
  15. METFORMIN HYDROCHLORIDE [Concomitant]
     Active Substance: METFORMIN HYDROCHLORIDE
     Indication: Type 2 diabetes mellitus
     Dosage: 500 MG (1000MG: 1/2 - 0 - 0)
     Route: 065
  16. ALLOPURINOL [Concomitant]
     Active Substance: ALLOPURINOL
     Indication: Hyperuricaemia
     Dosage: 300 MG, QD (0 - 1 - 0)
     Route: 065
  17. ACLIDINIUM BROMIDE [Concomitant]
     Active Substance: ACLIDINIUM BROMIDE
     Indication: Chronic obstructive pulmonary disease
     Dosage: 322 UG (DOSAGE FORM: PLV INH)
     Route: 065
  18. FENOFIBRATE [Concomitant]
     Active Substance: FENOFIBRATE
     Indication: Lipid metabolism disorder
     Dosage: 267 MG, Q24H (1-0-0) (DOSAGE FORM: CPS DUR)
     Route: 065
     Dates: end: 20220626
  19. ENOXAPARIN SODIUM [Concomitant]
     Active Substance: ENOXAPARIN SODIUM
     Indication: Thrombosis prophylaxis
     Dosage: 0.6 ML, QD (1 - 0 - 0) (60 MG)/0.6 ML
     Route: 065
  20. ASPIRIN [Concomitant]
     Active Substance: ASPIRIN
     Indication: Antiplatelet therapy
     Dosage: 100 MG, QD (1 - 0 - 0)
     Route: 065
  21. FORMOTEROL FUMARATE [Concomitant]
     Active Substance: FORMOTEROL FUMARATE
     Indication: Chronic obstructive pulmonary disease
     Dosage: 12 UG, BID (1 - 0 - 1) (DOSAGE FORM: PLV ICD)
     Route: 065

REACTIONS (1)
  - Immune thrombocytopenia [Recovered/Resolved]

NARRATIVE: CASE EVENT DATE: 20220627
